FAERS Safety Report 4449552-6 (Version None)
Quarter: 2004Q3

REPORT INFORMATION
  Report Type: 
  Country: None (occurrence: None)
  Receive Date: 20040913
  Receipt Date: 20040901
  Transmission Date: 20050211
  Serious: Yes (Other)
  Sender: FDA-Public Use
  Company Number: FR-2004-031195

PATIENT
  Age: 70 Year
  Sex: Male

DRUGS (1)
  1. CAMPATH/ MABCAMPATH(ALEMTUZUMAB) 30 MG/D, 3X/WEEK, INTRAVENOUS [Suspect]
     Indication: CHRONIC LYMPHOCYTIC LEUKAEMIA
     Dosage: 30 MG/D, 3X/WEEK, INTRAVENOUS
     Route: 042
     Dates: start: 20040501, end: 20040801

REACTIONS (2)
  - HISTIOCYTOSIS HAEMATOPHAGIC [None]
  - PANCYTOPENIA [None]
